FAERS Safety Report 8829894 (Version 1)
Quarter: 2012Q4

REPORT INFORMATION
  Report Type: Spontaneous
  Country: CA (occurrence: None)
  Receive Date: 20121004
  Receipt Date: 20121004
  Transmission Date: 20130627
  Serious: Yes (Other)
  Sender: FDA-Public Use
  Company Number: 2012-003480

PATIENT
  Age: 65 Year
  Sex: Female

DRUGS (3)
  1. ACTONEL [Suspect]
     Route: 048
     Dates: start: 2005, end: 2012
  2. ACTONEL (RISEDRONATE SODIUM) TABLET, 35MG [Suspect]
     Route: 048
     Dates: start: 2012
  3. RAMIPRIL [Concomitant]

REACTIONS (6)
  - Arthropathy [None]
  - Musculoskeletal pain [None]
  - Abasia [None]
  - Hypermagnesaemia [None]
  - Amnesia [None]
  - Hypokalaemia [None]
